FAERS Safety Report 5125919-8 (Version None)
Quarter: 2006Q4

REPORT INFORMATION
  Report Type: 
  Country: None (occurrence: None)
  Receive Date: 20061012
  Receipt Date: 20061003
  Transmission Date: 20070319
  Serious: Yes (Life-Threatening)
  Sender: FDA-Public Use
  Company Number: GB-AVENTIS-200620399GDDC

PATIENT
  Age: 15 Year
  Sex: Male
  Weight: 60 kg

DRUGS (12)
  1. CEFOTAXIME [Suspect]
     Indication: BRAIN ABSCESS
     Route: 042
     Dates: start: 20060301, end: 20060326
  2. METRONIDAZOLE [Suspect]
     Indication: BRAIN ABSCESS
     Route: 042
     Dates: start: 20060301, end: 20060326
  3. BENZYLPENICILLIN [Suspect]
     Indication: BRAIN ABSCESS
     Route: 042
     Dates: start: 20060301, end: 20060325
  4. CIPROFLOXACIN [Suspect]
     Indication: BRAIN ABSCESS
     Route: 042
     Dates: start: 20060326, end: 20060326
  5. CODIENE PHOSPHATE [Concomitant]
     Indication: PAIN
     Route: 048
     Dates: start: 20060323
  6. DEXAMETHASONE TAB [Concomitant]
     Route: 042
     Dates: start: 20060226, end: 20060301
  7. IBUPROFEN [Concomitant]
     Indication: PAIN
     Route: 048
     Dates: start: 20060228, end: 20060228
  8. ONDANSETRON [Concomitant]
     Indication: VOMITING
     Route: 048
     Dates: start: 20060228, end: 20060228
  9. ACETAMINOPHEN [Concomitant]
     Indication: PAIN
     Route: 048
     Dates: start: 20060228, end: 20060228
  10. RANITIDINE [Concomitant]
     Indication: VOMITING
     Route: 048
     Dates: start: 20060326
  11. VITAMIN K [Concomitant]
     Route: 048
     Dates: start: 20060325, end: 20060327
  12. VITAMIN K [Concomitant]
     Route: 048
     Dates: start: 20060325, end: 20060327

REACTIONS (5)
  - BODY TEMPERATURE INCREASED [None]
  - HEART RATE INCREASED [None]
  - NAUSEA [None]
  - RASH [None]
  - VOMITING [None]
